FAERS Safety Report 5299076-1 (Version None)
Quarter: 2007Q2

REPORT INFORMATION
  Report Type: 
  Country: None (occurrence: None)
  Receive Date: 20070417
  Receipt Date: 20070412
  Transmission Date: 20071010
  Serious: Yes (Disabling, Other)
  Sender: FDA-Public Use
  Company Number: US-GLAXOSMITHKLINE-A0646288A

PATIENT
  Age: 41 Year
  Sex: Female

DRUGS (16)
  1. TYKERB [Suspect]
     Indication: BREAST CANCER
     Dosage: 250MG FIVE TIMES PER DAY
     Route: 048
     Dates: start: 20070327, end: 20070409
  2. ATENOLOL [Suspect]
     Dates: end: 20070408
  3. AZITHROMYCIN [Concomitant]
  4. LASIX [Concomitant]
  5. UNKNOWN MEDICATION [Concomitant]
  6. ATIVAN [Concomitant]
  7. XELODA [Concomitant]
     Dosage: 2000MG PER DAY
  8. DECADRON [Concomitant]
  9. NAPROSYN [Concomitant]
  10. PEPCID [Concomitant]
  11. VALIUM [Concomitant]
  12. ERYTHROMYCIN [Concomitant]
     Indication: INFECTION PROPHYLAXIS
  13. TESSALON [Concomitant]
  14. MORPHINE [Concomitant]
  15. NIFEDIPINE [Concomitant]
  16. NYSTATIN [Concomitant]
     Route: 048

REACTIONS (11)
  - CYANOSIS [None]
  - DRUG INTERACTION [None]
  - EMBOLISM [None]
  - ERYTHEMA [None]
  - HYPOAESTHESIA [None]
  - ILL-DEFINED DISORDER [None]
  - NECROSIS [None]
  - PAIN IN EXTREMITY [None]
  - PARAESTHESIA [None]
  - SKIN DISCOLOURATION [None]
  - SKIN DISORDER [None]
